FAERS Safety Report 23055191 (Version 1)
Quarter: 2023Q4

REPORT INFORMATION
  Report Type: Spontaneous
  Country: GB (occurrence: GB)
  Receive Date: 20231011
  Receipt Date: 20231011
  Transmission Date: 20240110
  Serious: Yes (Hospitalization, Other)
  Sender: FDA-Public Use
  Company Number: GB-MYLANLABS-2023M1106342

PATIENT
  Sex: Male

DRUGS (9)
  1. CLOZAPINE [Suspect]
     Active Substance: CLOZAPINE
     Indication: Schizoaffective disorder
     Dosage: UNK, DOSE GRADUALLY TITRATED; INITIAL DOSE UNKNOWN
     Route: 065
  2. CLOZAPINE [Suspect]
     Active Substance: CLOZAPINE
     Dosage: UNK, DOSE DECREASED
     Route: 065
  3. CLOZAPINE [Suspect]
     Active Substance: CLOZAPINE
     Dosage: UNK, DOSES GRADUALLY INCREASED
     Route: 065
  4. CLOZAPINE [Suspect]
     Active Substance: CLOZAPINE
     Dosage: UNK, DOSES GRADUALLY TAPERED
     Route: 065
  5. LITHIUM [Suspect]
     Active Substance: LITHIUM
     Indication: Mood swings
     Dosage: UNK, INITIAL DOSE UNKNOWN
     Route: 065
  6. LITHIUM [Suspect]
     Active Substance: LITHIUM
     Dosage: UNK, DOSE DECREASED
     Route: 065
  7. LITHIUM [Suspect]
     Active Substance: LITHIUM
     Dosage: UNK, DOSE GRADUALLY INCREASED
     Route: 065
  8. LITHIUM [Suspect]
     Active Substance: LITHIUM
     Dosage: UNK, DOSE FURTHER INCREASED
     Route: 065
  9. LITHIUM [Suspect]
     Active Substance: LITHIUM
     Dosage: UNK, DOSE GRADUALLY TAPERED
     Route: 065

REACTIONS (7)
  - Acute febrile neutrophilic dermatosis [Recovered/Resolved]
  - Disease recurrence [Recovered/Resolved]
  - Bronchitis [Recovered/Resolved]
  - Tachycardia [Recovered/Resolved]
  - Oedema peripheral [Recovered/Resolved]
  - Drug ineffective for unapproved indication [Unknown]
  - Off label use [Unknown]
